FAERS Safety Report 17508283 (Version 3)
Quarter: 2020Q2

REPORT INFORMATION
  Report Type: Spontaneous
  Country: GB (occurrence: GB)
  Receive Date: 20200305
  Receipt Date: 20200408
  Transmission Date: 20200713
  Serious: Yes (Other)
  Sender: FDA-Public Use
  Company Number: GB-ACCORD-174545

PATIENT
  Age: 87 Year
  Sex: Female

DRUGS (9)
  1. LOSARTAN. [Concomitant]
     Active Substance: LOSARTAN
  2. FUROSEMIDE. [Suspect]
     Active Substance: FUROSEMIDE
     Indication: OEDEMA
     Dosage: FREQUENCY: TWICE DAILY MORNING AND NIGHT
     Route: 042
     Dates: start: 20200216
  3. IRON [Concomitant]
     Active Substance: IRON
  4. FUROSEMIDE. [Suspect]
     Active Substance: FUROSEMIDE
     Indication: CARDIAC FAILURE CONGESTIVE
     Dosage: FREQUENCY: ONCE
     Route: 042
     Dates: start: 20200215
  5. RIVAROXABAN [Concomitant]
     Active Substance: RIVAROXABAN
  6. DIGOXIN. [Concomitant]
     Active Substance: DIGOXIN
  7. FUROSEMIDE. [Suspect]
     Active Substance: FUROSEMIDE
     Indication: OEDEMA
     Dosage: FREQUENCY: TWICE DAILY MORNING AND NIGHT
     Route: 048
     Dates: end: 20200225
  8. PARACETAMOL [Concomitant]
     Active Substance: ACETAMINOPHEN
  9. FUROSEMIDE. [Suspect]
     Active Substance: FUROSEMIDE
     Indication: OEDEMA
     Dosage: FREQUENCY: TWICE DAILY MORNING AND NIGHT
     Route: 042

REACTIONS (11)
  - Chromaturia [Unknown]
  - Malaise [Recovered/Resolved]
  - Loss of consciousness [Recovered/Resolved]
  - Body temperature increased [Unknown]
  - Head injury [Unknown]
  - Hallucination [Recovered/Resolved]
  - Fall [Unknown]
  - Cough [Unknown]
  - Fatigue [Unknown]
  - Somnolence [Recovered/Resolved]
  - Confusional state [Unknown]

NARRATIVE: CASE EVENT DATE: 20200219
